FAERS Safety Report 10932663 (Version 1)
Quarter: 2015Q1

REPORT INFORMATION
  Report Type: Spontaneous
  Country: US (occurrence: None)
  Receive Date: 20150318
  Receipt Date: 20150318
  Transmission Date: 20150721
  Serious: Yes (Hospitalization)
  Sender: FDA-Public Use
  Company Number: US-001728

PATIENT
  Age: 68 Year
  Sex: Female

DRUGS (2)
  1. GATTEX [Suspect]
     Active Substance: TEDUGLUTIDE\WATER
     Indication: SHORT-BOWEL SYNDROME
     Dosage: DF SUBCUTANEOUS
     Route: 058
     Dates: start: 20131214
  2. SOLUTIOINS FOR PARENTERAL NUTRITION [Concomitant]

REACTIONS (3)
  - Abdominal pain [None]
  - Blood magnesium abnormal [None]
  - Blood sodium abnormal [None]

NARRATIVE: CASE EVENT DATE: 20150208
